FAERS Safety Report 9601671 (Version 1)
Quarter: 2013Q4

REPORT INFORMATION
  Report Type: Spontaneous
  Country: GB (occurrence: None)
  Receive Date: 20131002
  Receipt Date: 20131002
  Transmission Date: 20140711
  Serious: Yes (Hospitalization, Other)
  Sender: FDA-Public Use
  Company Number: AUR-APL-2013-07907

PATIENT
  Sex: Female

DRUGS (3)
  1. RIBAVIRIN [Suspect]
     Indication: HEPATITIS C
     Dosage: (600 MG, 1 IN 1 )
     Dates: start: 20120821
  2. INCIVO [Suspect]
     Indication: HEPATITIS C
     Dosage: (750 MG, 1 IN 8HR)
     Route: 048
     Dates: start: 20120821, end: 20121113
  3. PEGASYS (PEGINTERFERON ALFA-2A) [Suspect]
     Indication: HEPATITIS C

REACTIONS (4)
  - Anaemia [None]
  - Pruritus [None]
  - Malaise [None]
  - Rash [None]
